FAERS Safety Report 10413382 (Version 2)
Quarter: 2014Q3

REPORT INFORMATION
  Report Type: Spontaneous
  Country: US (occurrence: US)
  Receive Date: 20140827
  Receipt Date: 20140923
  Transmission Date: 20150326
  Serious: Yes (Hospitalization)
  Sender: FDA-Public Use
  Company Number: US-GLAXOSMITHKLINE-A1085921A

PATIENT
  Age: 62 Year
  Sex: Female

DRUGS (13)
  1. DALIRESP [Suspect]
     Active Substance: ROFLUMILAST
     Indication: DYSPNOEA
     Route: 065
     Dates: start: 2014
  2. WATER PILL [Concomitant]
     Active Substance: UNSPECIFIED INGREDIENT
  3. POTASSIUM [Concomitant]
     Active Substance: POTASSIUM
  4. ZOCOR [Concomitant]
     Active Substance: SIMVASTATIN
  5. RANITIDINE [Suspect]
     Active Substance: RANITIDINE\RANITIDINE HYDROCHLORIDE
     Indication: GASTRIC DISORDER
     Dosage: 150MG TWICE PER DAY
     Route: 048
     Dates: start: 2006
  6. FENTANYL. [Concomitant]
     Active Substance: FENTANYL
  7. FLEXERIL [Concomitant]
     Active Substance: CYCLOBENZAPRINE HYDROCHLORIDE
  8. IPRATROPIUM BROMIDE. [Concomitant]
     Active Substance: IPRATROPIUM BROMIDE
  9. DUONEB [Concomitant]
     Active Substance: ALBUTEROL SULFATE\IPRATROPIUM BROMIDE
  10. OXYCODONE [Concomitant]
     Active Substance: OXYCODONE
  11. BROVANA [Concomitant]
     Active Substance: ARFORMOTEROL TARTRATE
  12. OXYGEN. [Concomitant]
     Active Substance: OXYGEN
  13. XANAX [Concomitant]
     Active Substance: ALPRAZOLAM

REACTIONS (5)
  - Decreased appetite [Unknown]
  - Productive cough [Unknown]
  - Lung disorder [Unknown]
  - Investigation [Unknown]
  - Weight decreased [Unknown]

NARRATIVE: CASE EVENT DATE: 2014
